FAERS Safety Report 5931730-8 (Version None)
Quarter: 2008Q4

REPORT INFORMATION
  Report Type: 
  Country: None (occurrence: None)
  Receive Date: 20081027
  Receipt Date: 20081015
  Transmission Date: 20090506
  Serious: No
  Sender: FDA-Public Use
  Company Number: GB-PFIZER INC-2008086884

PATIENT
  Age: 56 Year
  Sex: Male

DRUGS (9)
  1. GABAPENTIN [Suspect]
  2. MORPHINE [Suspect]
     Indication: ANALGESIA
  3. FENTANYL CITRATE [Suspect]
     Indication: PAIN
     Route: 048
  4. HALOPERIDOL [Suspect]
  5. ACETAMINOPHEN [Suspect]
  6. OXYCONTIN [Suspect]
     Indication: ANALGESIA
  7. HYDROMORPHONE HCL [Suspect]
     Indication: ANALGESIA
     Dosage: DAILY DOSE:25MG-FREQ:DAILY
     Route: 058
  8. HYDROMORPHONE HCL [Suspect]
     Dosage: DAILY DOSE:24MG-FREQ:DAILY
     Route: 058
  9. HYDROMORPHONE HCL [Concomitant]

REACTIONS (1)
  - NO ADVERSE EVENT [None]
